FAERS Safety Report 7968340-7 (Version None)
Quarter: 2011Q4

REPORT INFORMATION
  Report Type: 
  Country: None (occurrence: None)
  Receive Date: 20111209
  Receipt Date: 20111130
  Transmission Date: 20120403
  Serious: Yes (Other)
  Sender: FDA-Public Use
  Company Number: BR-JNJFOC-20111200860

PATIENT
  Sex: Male

DRUGS (4)
  1. TRAZODONE HCL [Concomitant]
     Route: 065
  2. CYMBALTA [Concomitant]
     Route: 065
  3. RISPERDAL CONSTA [Suspect]
     Indication: PRODUCT USED FOR UNKNOWN INDICATION
     Route: 030
     Dates: end: 20111001
  4. PAXIL [Concomitant]
     Route: 065

REACTIONS (1)
  - APPENDICECTOMY [None]
